FAERS Safety Report 6249601-9 (Version None)
Quarter: 2009Q2

REPORT INFORMATION
  Report Type: 
  Country: None (occurrence: None)
  Receive Date: 20090629
  Receipt Date: 20090626
  Transmission Date: 20091009
  Serious: Yes (Death)
  Sender: FDA-Public Use
  Company Number: IN-WYE-H09923409

PATIENT
  Sex: Male
  Weight: 43 kg

DRUGS (5)
  1. TEMSIROLIMUS [Suspect]
     Indication: RENAL CELL CARCINOMA
     Route: 042
     Dates: start: 20090610, end: 20090617
  2. MORPHINE [Concomitant]
     Indication: BACK PAIN
     Route: 048
     Dates: start: 20090610
  3. MORPHINE [Concomitant]
     Route: 048
     Dates: start: 20090610
  4. LACTULOSE [Concomitant]
     Indication: PROPHYLAXIS
     Route: 048
     Dates: start: 20090610
  5. BEVACIZUMAB [Suspect]
     Indication: RENAL CELL CARCINOMA
     Route: 042
     Dates: start: 20090610

REACTIONS (1)
  - DEATH [None]
